FAERS Safety Report 5522794-4 (Version None)
Quarter: 2007Q4

REPORT INFORMATION
  Report Type: 
  Country: None (occurrence: None)
  Receive Date: 20071120
  Receipt Date: 20071108
  Transmission Date: 20080405
  Serious: Yes (Hospitalization)
  Sender: FDA-Public Use
  Company Number: BR-GENENTECH-251541

PATIENT
  Age: 66 Year
  Sex: Female
  Weight: 72 kg

DRUGS (1)
  1. MABTHERA [Suspect]
     Indication: RHEUMATOID ARTHRITIS
     Dosage: 1000 MG, UNK
     Route: 042
     Dates: start: 20071024

REACTIONS (2)
  - ESCHERICHIA URINARY TRACT INFECTION [None]
  - MENTAL DISORDER [None]
